FAERS Safety Report 7621170-8 (Version None)
Quarter: 2011Q3

REPORT INFORMATION
  Report Type: 
  Country: None (occurrence: None)
  Receive Date: 20110719
  Receipt Date: 20110714
  Transmission Date: 20111222
  Serious: Yes (Death, Hospitalization, Disabling)
  Sender: FDA-Public Use
  Company Number: ZA-CELGENEUS-143-C5013-10112431

PATIENT
  Sex: Male
  Weight: 72 kg

DRUGS (12)
  1. FLOMAX [Concomitant]
     Indication: MICTURITION DISORDER
     Dosage: .4 MILLIGRAM
     Route: 048
     Dates: start: 20101012
  2. OMEPRAZOLE [Concomitant]
     Indication: GASTRIC ULCER
     Dosage: 20 MILLIGRAM
     Route: 065
     Dates: start: 20101025
  3. LENALIDOMIDE [Suspect]
     Indication: PROSTATE CANCER
     Dosage: 25 MILLIGRAM
     Route: 048
     Dates: start: 20100921
  4. DOCETAXEL [Suspect]
     Dosage: 130 MILLIGRAM
     Route: 065
     Dates: start: 20101116, end: 20101120
  5. BETAMETHASONE [Concomitant]
     Indication: PREMEDICATION
     Dosage: 8 MILLIGRAM
     Route: 048
     Dates: start: 20100920
  6. PREDNISONE [Suspect]
     Indication: PROSTATE CANCER
     Dosage: 10 MILLIGRAM
     Route: 065
     Dates: start: 20100921
  7. LENALIDOMIDE [Suspect]
     Dosage: 25 MILLIGRAM
     Route: 048
     Dates: start: 20101116, end: 20101120
  8. ZOFRAN [Concomitant]
     Dosage: 8 MILLIGRAM
     Route: 048
     Dates: start: 20101116, end: 20101118
  9. BETAMETHASONE [Concomitant]
     Dosage: 8 MILLIGRAM
     Route: 048
     Dates: start: 20101115, end: 20101120
  10. DOCETAXEL [Suspect]
     Indication: PROSTATE CANCER
     Dosage: 135 MILLIGRAM
     Route: 065
     Dates: start: 20100921
  11. PREDNISONE [Suspect]
     Dosage: 10 MILLIGRAM
     Route: 065
     Dates: start: 20101116, end: 20101121
  12. OMEPRAZOLE [Concomitant]
     Route: 065

REACTIONS (1)
  - ISCHAEMIC STROKE [None]
